FAERS Safety Report 9173997 (Version 2)
Quarter: 2013Q2

REPORT INFORMATION
  Report Type: Spontaneous
  Country: US (occurrence: US)
  Receive Date: 20130320
  Receipt Date: 20130402
  Transmission Date: 20140414
  Serious: Yes (Hospitalization)
  Sender: FDA-Public Use
  Company Number: PHHY2013US025772

PATIENT
  Age: 36 Year
  Sex: Male

DRUGS (4)
  1. METOPROLOL [Suspect]
     Dosage: (10 TO 12 TABLETS OF METOPROLOL)
  2. MECLIZINE [Suspect]
     Dosage: (12 TO 15 TABLETS OF MECLIZINE)
  3. PROMETHAZINE [Suspect]
     Dosage: (4 TO 6 TABLETS OF PROMETHAZINE)
  4. PREGABALIN [Suspect]
     Dosage: (5 TO 8 CAPSULES)

REACTIONS (26)
  - Brain injury [Unknown]
  - Brain hypoxia [Unknown]
  - Dysarthria [Unknown]
  - Mental status changes [Unknown]
  - Mental disorder [Unknown]
  - Unresponsive to stimuli [Recovering/Resolving]
  - Lethargy [Unknown]
  - Respiratory failure [Recovering/Resolving]
  - Renal failure [Recovering/Resolving]
  - Adrenal insufficiency [Unknown]
  - Hepatic ischaemia [Recovering/Resolving]
  - Mydriasis [Unknown]
  - Pupillary reflex impaired [Unknown]
  - Peripheral pulse decreased [Unknown]
  - Hypotension [Recovering/Resolving]
  - Bradycardia [Recovering/Resolving]
  - Metabolic disorder [Unknown]
  - Sepsis [Unknown]
  - Blindness [Not Recovered/Not Resolved]
  - Visual acuity reduced [Not Recovered/Not Resolved]
  - Haemodynamic instability [Recovering/Resolving]
  - Coma scale abnormal [Unknown]
  - Toxicity to various agents [Unknown]
  - Suicide attempt [Unknown]
  - General physical health deterioration [Unknown]
  - Intentional overdose [Unknown]
